FAERS Safety Report 20582187 (Version 1)
Quarter: 2022Q1

REPORT INFORMATION
  Report Type: Spontaneous
  Country: US (occurrence: US)
  Receive Date: 20220311
  Receipt Date: 20220311
  Transmission Date: 20220423
  Serious: Yes (Death, Other)
  Sender: FDA-Public Use
  Company Number: US-BTGSP-US-BTGSP-22-0016

PATIENT
  Age: 58 Year
  Sex: Male

DRUGS (4)
  1. CROFAB [Suspect]
     Active Substance: CROTALIDAE POLYVALENT IMMUNE FAB (OVINE)
     Indication: Snake bite
     Dosage: 6 VIALS
     Route: 065
  2. CROFAB [Suspect]
     Active Substance: CROTALIDAE POLYVALENT IMMUNE FAB (OVINE)
     Dosage: 14 VIALS (TOTAL OF 24 VIALS)
     Route: 065
  3. CISATRACURIUM [Suspect]
     Active Substance: CISATRACURIUM
     Indication: Seizure
     Dosage: UNK
     Route: 065
  4. PROPOFOL [Suspect]
     Active Substance: PROPOFOL
     Indication: Tremor
     Dosage: UNK
     Route: 065

REACTIONS (2)
  - Hypoxic-ischaemic encephalopathy [Fatal]
  - Thrombocytopenia [Recovered/Resolved]
